FAERS Safety Report 7199214-X (Version None)
Quarter: 2010Q4

REPORT INFORMATION
  Report Type: 
  Country: None (occurrence: None)
  Receive Date: 20101228
  Receipt Date: 20101217
  Transmission Date: 20110411
  Serious: Yes (Other)
  Sender: FDA-Public Use
  Company Number: PHHY2010US87521

PATIENT
  Age: 42 Year
  Sex: Female

DRUGS (3)
  1. FANAPT [Suspect]
     Dosage: 8 MG, BID
     Route: 048
  2. FANAPT [Suspect]
     Dosage: 6 MG, BID
     Route: 048
  3. RISPERDAL [Suspect]

REACTIONS (5)
  - BLOOD PROLACTIN INCREASED [None]
  - BREAST ENGORGEMENT [None]
  - METRORRHAGIA [None]
  - MUSCLE FATIGUE [None]
  - VISUAL IMPAIRMENT [None]
